FAERS Safety Report 7903614-7 (Version None)
Quarter: 2011Q4

REPORT INFORMATION
  Report Type: 
  Country: None (occurrence: None)
  Receive Date: 20111109
  Receipt Date: 20111026
  Transmission Date: 20120403
  Serious: Yes (Other)
  Sender: FDA-Public Use
  Company Number: FR-CELGENEUS-056-50794-11103074

PATIENT
  Sex: Male

DRUGS (1)
  1. VIDAZA [Suspect]
     Dosage: 120MG PER CURE
     Route: 041
     Dates: start: 20110201, end: 20110919

REACTIONS (1)
  - ATAXIA [None]
